FAERS Safety Report 4517948-X (Version None)
Quarter: 2004Q4

REPORT INFORMATION
  Report Type: 
  Country: None (occurrence: None)
  Receive Date: 20041130
  Receipt Date: 20041116
  Transmission Date: 20050328
  Serious: No
  Sender: FDA-Public Use
  Company Number: B0357586A

PATIENT
  Sex: 0

DRUGS (4)
  1. EPIVIR [Suspect]
     Indication: HIV INFECTION
  2. RETROVIR [Suspect]
     Indication: HIV INFECTION
  3. NEVIRAPINE (NEVIRAPINE) [Suspect]
     Indication: HIV INFECTION
  4. STAVUDINE [Concomitant]

REACTIONS (1)
  - STEVENS-JOHNSON SYNDROME [None]
